FAERS Safety Report 18914112 (Version 2)
Quarter: 2021Q4

REPORT INFORMATION
  Report Type: Spontaneous
  Country: GB (occurrence: GB)
  Receive Date: 20210218
  Receipt Date: 20211026
  Transmission Date: 20220304
  Serious: Yes (Other)
  Sender: FDA-Public Use
  Company Number: None

PATIENT
  Age: 47 Year
  Sex: Female
  Weight: 55.33 kg

DRUGS (3)
  1. RIFAXIMIN [Suspect]
     Active Substance: RIFAXIMIN
     Indication: Ill-defined disorder
     Dosage: AT A DOSE OF 3 (UNSPECIFIED UNIT) PER DAY FOR 2 WEEKS
     Route: 048
     Dates: start: 20210118, end: 20210131
  2. RIFAXIMIN [Suspect]
     Active Substance: RIFAXIMIN
     Indication: Gastrointestinal bacterial overgrowth
  3. RIFAXIMIN [Suspect]
     Active Substance: RIFAXIMIN
     Indication: Product use in unapproved indication

REACTIONS (6)
  - Lip injury [Recovering/Resolving]
  - Oral discomfort [Recovering/Resolving]
  - Papule [Recovering/Resolving]
  - Lip pruritus [Unknown]
  - Lip dry [Recovering/Resolving]
  - Intentional product use issue [Recovered/Resolved]

NARRATIVE: CASE EVENT DATE: 20210118
